FAERS Safety Report 7426940-7 (Version None)
Quarter: 2011Q2

REPORT INFORMATION
  Report Type: 
  Country: None (occurrence: None)
  Receive Date: 20110420
  Receipt Date: 20110413
  Transmission Date: 20111010
  Serious: Yes (Hospitalization, Other)
  Sender: FDA-Public Use
  Company Number: US-ABBOTT-11P-163-0718776-00

PATIENT
  Sex: Female
  Weight: 88.984 kg

DRUGS (16)
  1. HUMIRA [Suspect]
  2. ASPIRIN [Suspect]
     Indication: PRODUCT USED FOR UNKNOWN INDICATION
     Dates: end: 20110201
  3. METHOTREXATE [Concomitant]
     Indication: PRODUCT USED FOR UNKNOWN INDICATION
  4. RANITIDINE [Concomitant]
     Indication: PRODUCT USED FOR UNKNOWN INDICATION
     Dates: end: 20110201
  5. ISOSORBIDE DINITRATE [Concomitant]
     Indication: PRODUCT USED FOR UNKNOWN INDICATION
  6. MELOXICAM [Suspect]
     Indication: PRODUCT USED FOR UNKNOWN INDICATION
     Dates: end: 20110201
  7. PLAVIX [Concomitant]
     Indication: CARDIAC DISORDER
  8. HUMIRA [Suspect]
     Indication: RHEUMATOID ARTHRITIS
     Dates: start: 20080601
  9. SIMVASTATIN [Concomitant]
     Indication: BLOOD CHOLESTEROL
  10. NEURPATH [Concomitant]
     Indication: PRODUCT USED FOR UNKNOWN INDICATION
  11. QUALAQUIN [Concomitant]
     Indication: PRODUCT USED FOR UNKNOWN INDICATION
  12. TRIAMTERENE AND HYDROCHLOROTHIAZIDE [Suspect]
     Indication: BLOOD PRESSURE
     Dates: end: 20110201
  13. FOLIC ACID [Suspect]
     Indication: PRODUCT USED FOR UNKNOWN INDICATION
     Dates: end: 20110201
  14. LISINOPRIL [Concomitant]
     Indication: BLOOD PRESSURE
  15. PROTONIX [Concomitant]
     Indication: PRODUCT USED FOR UNKNOWN INDICATION
  16. FERROUS SULFATE TAB [Concomitant]
     Indication: PRODUCT USED FOR UNKNOWN INDICATION
     Dates: start: 20110201

REACTIONS (9)
  - GALLBLADDER OPERATION [None]
  - HIATUS HERNIA [None]
  - RENAL DISORDER [None]
  - MYOCARDIAL INFARCTION [None]
  - SOFT TISSUE NEOPLASM [None]
  - GASTROINTESTINAL HAEMORRHAGE [None]
  - GASTROOESOPHAGEAL REFLUX DISEASE [None]
  - DIZZINESS [None]
  - BLOOD CREATININE ABNORMAL [None]
